FAERS Safety Report 16516063 (Version 1)
Quarter: 2019Q3

REPORT INFORMATION
  Report Type: Spontaneous
  Country: US (occurrence: US)
  Receive Date: 20190702
  Receipt Date: 20190702
  Transmission Date: 20191004
  Serious: Yes (Hospitalization)
  Sender: FDA-Public Use
  Company Number: None

PATIENT
  Age: 25 Year
  Sex: Male
  Weight: 108.8 kg

DRUGS (13)
  1. VICKS DAYQUIL [Concomitant]
     Active Substance: DEXTROMETHORPHAN HYDROBROMIDE\GUAIFENESIN
     Dates: start: 20190303, end: 20190306
  2. PROTEIN SHAKES [Concomitant]
  3. CREATINE [Concomitant]
     Active Substance: CREATINE
  4. MULTIVITAMIN [Concomitant]
     Active Substance: VITAMINS
  5. P6 ULTIMATE T-BOOSTER [Concomitant]
  6. SLIMVANCE [Concomitant]
  7. PRE-WORKOUT [Concomitant]
  8. BUPROPRION XL [Suspect]
     Active Substance: BUPROPION
     Indication: DEPRESSION
     Route: 048
     Dates: start: 20190201, end: 20190305
  9. TRAZODONE [Concomitant]
     Active Substance: TRAZODONE HYDROCHLORIDE
     Dates: start: 20190201
  10. ESCITALOPRAM [Concomitant]
     Active Substance: ESCITALOPRAM OXALATE
     Dates: start: 20180612
  11. NALTREXONE [Suspect]
     Active Substance: NALTREXONE
     Indication: ALCOHOL USE DISORDER
     Dosage: ?          OTHER FREQUENCY:MONTHLY;?
     Route: 030
     Dates: start: 20180626, end: 20190225
  12. VICKS NYQUIL [Concomitant]
     Active Substance: ACETAMINOPHEN\DEXTROMETHORPHAN HYDROBROMIDE\DOXYLAMINE SUCCINATE
     Dates: start: 20190303, end: 20190306
  13. DIPHENHYDRAMINE 25 MG [Concomitant]
     Dates: start: 20190227, end: 20190306

REACTIONS (4)
  - Liver injury [None]
  - Haemoptysis [None]
  - Hepatotoxicity [None]
  - Productive cough [None]

NARRATIVE: CASE EVENT DATE: 20190306
